FAERS Safety Report 11014097 (Version 2)
Quarter: 2015Q2

REPORT INFORMATION
  Report Type: Spontaneous
  Country: US (occurrence: US)
  Receive Date: 20150412
  Receipt Date: 20150525
  Transmission Date: 20150821
  Serious: No
  Sender: FDA-Public Use
  Company Number: US-JNJFOC-20140519461

PATIENT
  Age: 66 Year
  Sex: Male
  Weight: 84.37 kg

DRUGS (20)
  1. TRAMADOL [Concomitant]
     Active Substance: TRAMADOL
     Indication: PAIN
  2. SELENIUM [Concomitant]
     Active Substance: SELENIUM
  3. GLUCOSAMINE [Concomitant]
     Active Substance: GLUCOSAMINE
  4. OLYSIO [Suspect]
     Active Substance: SIMEPREVIR
     Indication: HEPATITIS C
     Route: 048
     Dates: start: 201405
  5. CITALOPRAM HYDROBROMIDE. [Concomitant]
     Active Substance: CITALOPRAM HYDROBROMIDE
     Indication: DEPRESSION
     Dates: end: 201405
  6. GINSENG [Concomitant]
     Active Substance: ASIAN GINSENG
  7. ZINC [Concomitant]
     Active Substance: ZINC\ZINC CHLORIDE
  8. CHONDROITIN [Concomitant]
     Active Substance: CHONDROITIN
  9. ASPIRIN. [Concomitant]
     Active Substance: ASPIRIN
  10. MULTIVITAMINS [Concomitant]
     Active Substance: VITAMINS
  11. OMEGA 3 FISH OIL [Concomitant]
     Active Substance: FISH OIL\OMEGA-3 FATTY ACIDS
  12. TOCOPHEROL [Concomitant]
     Active Substance: TOCOPHEROL
  13. VITAMIN D [Concomitant]
     Active Substance: CHOLECALCIFEROL
  14. MILK THISTLE [Concomitant]
     Active Substance: MILK THISTLE
     Dates: end: 201405
  15. ECHINACEA WITH GOLDENSEAL [Concomitant]
  16. VITAMIN C [Concomitant]
     Active Substance: ASCORBIC ACID
  17. SOVALDI [Suspect]
     Active Substance: SOFOSBUVIR
     Indication: HEPATITIS C
     Route: 065
  18. BUPROPION [Concomitant]
     Active Substance: BUPROPION
     Indication: DEPRESSION
  19. CYCLOBENZAPRINE [Concomitant]
     Active Substance: CYCLOBENZAPRINE
     Indication: PAIN
  20. CALCIUM CITRATE [Concomitant]
     Active Substance: CALCIUM CITRATE

REACTIONS (3)
  - Fatigue [Not Recovered/Not Resolved]
  - Feeling abnormal [Not Recovered/Not Resolved]
  - Off label use [Not Recovered/Not Resolved]

NARRATIVE: CASE EVENT DATE: 201405
